FAERS Safety Report 13419878 (Version 1)
Quarter: 2017Q2

REPORT INFORMATION
  Report Type: Spontaneous
  Country: US (occurrence: US)
  Receive Date: 20170407
  Receipt Date: 20170407
  Transmission Date: 20170830
  Serious: No
  Sender: FDA-Public Use
  Company Number: US-JNJFOC-20170222104

PATIENT
  Age: 43 Year
  Sex: Female
  Weight: 86.18 kg

DRUGS (2)
  1. TOPAMAX [Suspect]
     Active Substance: TOPIRAMATE
     Indication: SEIZURE
     Route: 048
  2. KEPPRA [Concomitant]
     Active Substance: LEVETIRACETAM
     Indication: SEIZURE
     Route: 065

REACTIONS (2)
  - Viral upper respiratory tract infection [Not Recovered/Not Resolved]
  - Fear [Not Recovered/Not Resolved]

NARRATIVE: CASE EVENT DATE: 201702
